FAERS Safety Report 5615965-X (Version None)
Quarter: 2008Q1

REPORT INFORMATION
  Report Type: 
  Country: None (occurrence: None)
  Receive Date: 20080206
  Receipt Date: 20080114
  Transmission Date: 20080703
  Serious: No
  Sender: FDA-Public Use
  Company Number: US-BOEHRINGER INGELHEIM GMBH, GERMANY-2008-BP-00658BP

PATIENT
  Sex: Male

DRUGS (1)
  1. MICARDIS [Suspect]
     Indication: HYPERTENSION
     Route: 048
     Dates: start: 20071115

REACTIONS (5)
  - DRY EYE [None]
  - DRY MOUTH [None]
  - EYE DISCHARGE [None]
  - PHOTOPSIA [None]
  - PRURITUS [None]
